FAERS Safety Report 12672663 (Version 1)
Quarter: 2016Q3

REPORT INFORMATION
  Report Type: Spontaneous
  Country: DE (occurrence: DE)
  Receive Date: 20160822
  Receipt Date: 20160822
  Transmission Date: 20161109
  Serious: Yes (Other)
  Sender: FDA-Public Use
  Company Number: DE-BAYER-2016-162193

PATIENT
  Sex: Female

DRUGS (1)
  1. ASPIRIN MIGR?NE [Suspect]
     Active Substance: ASPIRIN

REACTIONS (2)
  - Cardiovascular disorder [None]
  - Loss of consciousness [None]
